FAERS Safety Report 20131997 (Version 1)
Quarter: 2021Q4

REPORT INFORMATION
  Report Type: Report from Study
  Country: US (occurrence: US)
  Receive Date: 20211130
  Receipt Date: 20211130
  Transmission Date: 20220303
  Serious: Yes (Hospitalization)
  Sender: FDA-Public Use
  Company Number: US-NOVARTISPH-NVSC2020US239145

PATIENT
  Age: 22 Year
  Sex: Male
  Weight: 95 kg

DRUGS (17)
  1. TOPOTECAN [Suspect]
     Active Substance: TOPOTECAN HYDROCHLORIDE
     Indication: Neoplasm malignant
     Dosage: 0.75 MG/M2 (29 DAYS)
     Route: 042
     Dates: start: 20200701, end: 20200730
  2. VENETOCLAX [Suspect]
     Active Substance: VENETOCLAX
     Indication: Neoplasm malignant
     Dosage: 400 MG, QD (400 MG-2) (30 DAYS))
     Route: 048
     Dates: start: 20200629, end: 20200629
  3. VENETOCLAX [Suspect]
     Active Substance: VENETOCLAX
     Dosage: 800 MG, QD (800 MG IN ONE DAY)(30 DAYS)
     Route: 048
     Dates: start: 20200630, end: 20200730
  4. VENETOCLAX [Suspect]
     Active Substance: VENETOCLAX
     Dosage: 400 MG (400 MG, -2) (0.75 MG/M2)
     Route: 048
     Dates: start: 20200629, end: 20200701
  5. SYNTHROID [Concomitant]
     Active Substance: LEVOTHYROXINE SODIUM
     Indication: Hypothyroidism
     Dosage: 137 MG, QD (137, MCG IN ONE DAY)
     Route: 048
     Dates: start: 20191219
  6. POLYETHYLENE GLYCOL [Concomitant]
     Active Substance: POLYETHYLENE GLYCOL
     Indication: Constipation
     Dosage: 34 G (17 GM, 2 IN 1 D)
     Route: 048
     Dates: start: 20200314
  7. CELEBREX [Concomitant]
     Active Substance: CELECOXIB
     Indication: Tumour pain
     Dosage: 200 MG (100 MG, 2 IN 1 D) (41 DAYS)
     Route: 048
     Dates: start: 20200520, end: 20200630
  8. CELEBREX [Concomitant]
     Active Substance: CELECOXIB
     Dosage: 400 MG (200 MG, 2 IN 1 D)
     Route: 048
     Dates: start: 20200701
  9. DOLOPHINE [Concomitant]
     Active Substance: METHADONE HYDROCHLORIDE
     Indication: Tumour pain
     Dosage: 40 MG (20 MG, 2 IN 1 D)
     Route: 048
     Dates: start: 20200521, end: 20200706
  10. DOLOPHINE [Concomitant]
     Active Substance: METHADONE HYDROCHLORIDE
     Dosage: 80 MG (40 MG, 2 IN 1 D)
     Route: 048
     Dates: start: 20200707
  11. DILAUDID [Concomitant]
     Active Substance: HYDROMORPHONE HYDROCHLORIDE
     Indication: Pain
     Dosage: 1-4 MG, PRN (1 IN 3 HRS)
     Route: 048
     Dates: start: 20200701, end: 20200703
  12. DILAUDID [Concomitant]
     Active Substance: HYDROMORPHONE HYDROCHLORIDE
     Dosage: 8 MG, PRN ((1 IN 3 HR))
     Route: 048
     Dates: start: 20200703
  13. DILAUDID [Concomitant]
     Active Substance: HYDROMORPHONE HYDROCHLORIDE
     Dosage: UNK (CONTINUOUS 50 MILIGRAM OR MILLIMETERS)
     Route: 042
     Dates: start: 20200704, end: 20200707
  14. ACETAMINOPHEN [Concomitant]
     Active Substance: ACETAMINOPHEN
     Indication: Tumour pain
     Dosage: 1000 MG, PRN (4 IN D)
     Route: 048
     Dates: start: 20191007
  15. PERIACTIN [Concomitant]
     Active Substance: CYPROHEPTADINE HYDROCHLORIDE
     Indication: Increased appetite
     Dosage: 6 MG (2 MG, 3 IN 1 D)
     Route: 048
     Dates: start: 20200702
  16. BACTRIM [Concomitant]
     Active Substance: SULFAMETHOXAZOLE\TRIMETHOPRIM
     Indication: Pneumocystis jirovecii pneumonia
     Dosage: UNK (800-160 MG, 2 IN 1 D)
     Route: 048
     Dates: start: 20190921
  17. ZYRTEC [Concomitant]
     Active Substance: CETIRIZINE HYDROCHLORIDE
     Indication: Rhinitis allergic
     Dosage: 10 MG, PRN (1 IN 1 D)
     Route: 048
     Dates: start: 20191104

REACTIONS (6)
  - Malignant neoplasm progression [Not Recovered/Not Resolved]
  - Vomiting [Not Recovered/Not Resolved]
  - Muscular weakness [Not Recovered/Not Resolved]
  - Non-cardiac chest pain [Not Recovered/Not Resolved]
  - Dyspnoea [Unknown]
  - Pyrexia [Recovered/Resolved]

NARRATIVE: CASE EVENT DATE: 20200730
